FAERS Safety Report 9721310 (Version 1)
Quarter: 2013Q4

REPORT INFORMATION
  Report Type: Spontaneous
  Country: US (occurrence: US)
  Receive Date: 20131129
  Receipt Date: 20131129
  Transmission Date: 20140711
  Serious: No
  Sender: FDA-Public Use
  Company Number: US-PFIZER INC-2013339377

PATIENT
  Age: 58 Year
  Sex: Female
  Weight: 50.34 kg

DRUGS (3)
  1. NEURONTIN [Suspect]
     Indication: COMPLEX REGIONAL PAIN SYNDROME
     Dosage: 300 MG, 3X/DAY
     Dates: start: 20130722
  2. NEURONTIN [Suspect]
     Dosage: 300 MG, 2X/DAY
     Dates: start: 201307, end: 20130725
  3. TRAMADOL [Concomitant]
     Indication: COMPLEX REGIONAL PAIN SYNDROME
     Dosage: 50 MG, 3X/DAY

REACTIONS (2)
  - Off label use [Unknown]
  - Malaise [Unknown]
